FAERS Safety Report 21560981 (Version 22)
Quarter: 2024Q2

REPORT INFORMATION
  Report Type: Spontaneous
  Country: CA (occurrence: CA)
  Receive Date: 20221107
  Receipt Date: 20240513
  Transmission Date: 20240715
  Serious: Yes (Death, Hospitalization, Other)
  Sender: FDA-Public Use
  Company Number: CA-ALXN-A202213530

PATIENT
  Age: 60 Year
  Sex: Female

DRUGS (7)
  1. SOLIRIS [Suspect]
     Active Substance: ECULIZUMAB
     Indication: Neuromyelitis optica spectrum disorder
     Dosage: 900 MILLIGRAM, QW
     Route: 042
     Dates: start: 20201009, end: 20201030
  2. SOLIRIS [Suspect]
     Active Substance: ECULIZUMAB
     Dosage: 1200 MILLIGRAM, Q2W
     Route: 042
     Dates: start: 20201106, end: 20230923
  3. SOLIRIS [Suspect]
     Active Substance: ECULIZUMAB
     Dosage: 92 WEEKS
     Route: 042
     Dates: start: 200210
  4. RITUXAN [Suspect]
     Active Substance: RITUXIMAB
     Indication: Product used for unknown indication
     Dosage: UNK
     Route: 065
  5. CALCIUM [Concomitant]
     Active Substance: CALCIUM
     Indication: Product used for unknown indication
     Dosage: UNK
     Route: 065
  6. ERGOCALCIFEROL [Concomitant]
     Active Substance: ERGOCALCIFEROL
     Indication: Product used for unknown indication
     Dosage: UNK
     Route: 065
  7. TYLENOL [Concomitant]
     Active Substance: ACETAMINOPHEN
     Indication: Product used for unknown indication
     Dosage: UNK
     Route: 065

REACTIONS (7)
  - Bacterial sepsis [Fatal]
  - Neuromyelitis optica spectrum disorder [Fatal]
  - Sepsis [Fatal]
  - Cardiac arrest [Fatal]
  - Brain oedema [Fatal]
  - Endocarditis [Not Recovered/Not Resolved]
  - Nutritional condition abnormal [Not Recovered/Not Resolved]

NARRATIVE: CASE EVENT DATE: 20221009
